FAERS Safety Report 4942739-5 (Version None)
Quarter: 2006Q1

REPORT INFORMATION
  Report Type: 
  Country: None (occurrence: None)
  Receive Date: 20060222
  Receipt Date: 20060210
  Transmission Date: 20060701
  Serious: Yes (Death, Hospitalization)
  Sender: FDA-Public Use
  Company Number: 200512017BBE

PATIENT
  Age: 79 Year
  Sex: Male

DRUGS (10)
  1. GAMIMUNE N 10% [Suspect]
     Dosage: 200 ML,
     Dates: start: 20051028
  2. SYNTHROID [Concomitant]
  3. FLUOXETINE HCL [Concomitant]
  4. PLAVIX [Concomitant]
  5. VANCOCIN [Concomitant]
  6. MEROPENEM [Concomitant]
  7. TYLENOL (CAPLET) [Concomitant]
  8. LASIX [Concomitant]
  9. RISERDAL [Concomitant]
  10. POTASSIUM CHLORIDE [Concomitant]

REACTIONS (5)
  - BLOOD PRESSURE DIASTOLIC DECREASED [None]
  - HYPERTENSION [None]
  - LEUKOPENIA [None]
  - NEUTROPENIA [None]
  - SEPSIS [None]
